FAERS Safety Report 15431674 (Version 3)
Quarter: 2018Q4

REPORT INFORMATION
  Report Type: Report from Study
  Country: US (occurrence: US)
  Receive Date: 20180926
  Receipt Date: 20181227
  Transmission Date: 20190204
  Serious: Yes (Hospitalization, Other)
  Sender: FDA-Public Use
  Company Number: US-ARIAD-2017US008365

PATIENT
  Sex: Male

DRUGS (2)
  1. PONATINIB [Suspect]
     Active Substance: PONATINIB
     Indication: CHRONIC MYELOID LEUKAEMIA
     Dosage: 30 MG, QD
     Route: 048
     Dates: start: 201510
  2. PONATINIB [Suspect]
     Active Substance: PONATINIB
     Dosage: 15 MG, QD
     Route: 048

REACTIONS (7)
  - White blood cell count increased [Unknown]
  - Psoriatic arthropathy [Unknown]
  - Pelvic pain [Unknown]
  - Myeloid leukaemia [Unknown]
  - Rheumatoid arthritis [Unknown]
  - Rash follicular [Unknown]
  - Hepatic enzyme increased [Unknown]
